FAERS Safety Report 5318965-2 (Version None)
Quarter: 2007Q2

REPORT INFORMATION
  Report Type: 
  Country: None (occurrence: None)
  Receive Date: 20070508
  Receipt Date: 20070430
  Transmission Date: 20071010
  Serious: Yes (Hospitalization, Other)
  Sender: FDA-Public Use
  Company Number: GB-AVENTIS-200713877GDDC

PATIENT
  Age: 2 Year
  Sex: Female
  Weight: 11.95 kg

DRUGS (1)
  1. ARAVA [Suspect]
     Indication: ACCIDENTAL DRUG INTAKE BY CHILD
     Dosage: DOSE: 2 TABLETS
     Route: 048
     Dates: start: 20070409, end: 20070409

REACTIONS (3)
  - ACCIDENTAL DRUG INTAKE BY CHILD [None]
  - GRAND MAL CONVULSION [None]
  - MEDICATION ERROR [None]
